FAERS Safety Report 7438194-6 (Version None)
Quarter: 2011Q2

REPORT INFORMATION
  Report Type: 
  Country: None (occurrence: None)
  Receive Date: 20110426
  Receipt Date: 20110411
  Transmission Date: 20111010
  Serious: Yes (Other)
  Sender: FDA-Public Use
  Company Number: GB-BAYER-2011-028679

PATIENT
  Age: 51 Year
  Sex: Female

DRUGS (1)
  1. INTERFERON BETA-1B [Suspect]
     Indication: MULTIPLE SCLEROSIS
     Dosage: UNK
     Route: 058
     Dates: start: 20100401

REACTIONS (5)
  - INFLUENZA [None]
  - MULTIPLE SCLEROSIS RELAPSE [None]
  - BLINDNESS [None]
  - TRIGEMINAL NEURALGIA [None]
  - INJECTION SITE ERYTHEMA [None]
